FAERS Safety Report 24353205 (Version 2)
Quarter: 2024Q4

REPORT INFORMATION
  Report Type: Spontaneous
  Country: KR (occurrence: KR)
  Receive Date: 20240923
  Receipt Date: 20241128
  Transmission Date: 20250115
  Serious: Yes (Hospitalization, Other)
  Sender: SAMSUNG BIOEPIS
  Company Number: KR-SAMSUNG BIOEPIS-SB-2024-28519

PATIENT
  Age: 79 Year
  Sex: Female
  Weight: 37.5 kg

DRUGS (44)
  1. TRASTUZUMAB [Suspect]
     Active Substance: TRASTUZUMAB
     Indication: HER2 positive biliary tract cancer
     Route: 042
     Dates: start: 20240422
  2. NIVOLUMAB [Suspect]
     Active Substance: NIVOLUMAB
     Indication: HER2 positive biliary tract cancer
     Route: 042
     Dates: start: 20240422
  3. GEMCITABINE [Suspect]
     Active Substance: GEMCITABINE
     Indication: HER2 positive biliary tract cancer
     Route: 042
     Dates: start: 20240422, end: 20240626
  4. CISPLATIN [Suspect]
     Active Substance: CISPLATIN
     Indication: HER2 positive biliary tract cancer
     Route: 042
     Dates: start: 20240422, end: 20240626
  5. ASCORBIC ACID [Concomitant]
     Active Substance: ASCORBIC ACID
     Indication: Product used for unknown indication
     Dosage: 20ML PRN;
     Route: 042
     Dates: start: 20240321
  6. HERBALS [Concomitant]
     Active Substance: HERBALS
     Indication: Product used for unknown indication
     Route: 048
     Dates: start: 20231024
  7. Dong-A Gaster [Concomitant]
     Indication: Product used for unknown indication
     Route: 048
     Dates: start: 20240308
  8. NORZYME [Concomitant]
     Indication: Product used for unknown indication
     Route: 048
     Dates: start: 20240308
  9. ACETAMINOPHEN\TRAMADOL [Concomitant]
     Active Substance: ACETAMINOPHEN\TRAMADOL
     Indication: Product used for unknown indication
     Route: 048
     Dates: start: 20240308
  10. Mago [Concomitant]
     Indication: Product used for unknown indication
     Route: 048
     Dates: start: 20231027
  11. OFLOXACIN [Concomitant]
     Active Substance: OFLOXACIN
     Indication: Product used for unknown indication
     Dosage: PRN;
     Route: 061
     Dates: start: 20240313
  12. OLMESARTAN MEDOXOMIL [Concomitant]
     Active Substance: OLMESARTAN MEDOXOMIL
     Indication: Product used for unknown indication
     Route: 048
     Dates: start: 20240315
  13. CARVEDILOL [Concomitant]
     Active Substance: CARVEDILOL
     Indication: Product used for unknown indication
     Route: 048
     Dates: start: 20240318
  14. OXYCODONE HYDROCHLORIDE [Concomitant]
     Active Substance: OXYCODONE HYDROCHLORIDE
     Indication: Product used for unknown indication
     Dosage: PRN;
     Route: 048
     Dates: start: 20240321
  15. AKYNZEO [Concomitant]
     Indication: Product used for unknown indication
     Route: 048
     Dates: start: 20240321
  16. DEXAMETHASONE SODIUM PHOSPHATE [Concomitant]
     Active Substance: DEXAMETHASONE SODIUM PHOSPHATE
     Indication: Product used for unknown indication
     Dosage: PRN;
     Route: 042
     Dates: start: 20240315
  17. Tmipool [Concomitant]
     Indication: Product used for unknown indication
     Dosage: PRN;
     Route: 042
     Dates: start: 20240321
  18. CHLORPHENIRAMINE MALEATE [Concomitant]
     Active Substance: CHLORPHENIRAMINE MALEATE
     Indication: Product used for unknown indication
     Dosage: PRN;
     Route: 042
     Dates: start: 20240422
  19. BANAN [Concomitant]
     Active Substance: CEFPODOXIME PROXETIL
     Indication: Product used for unknown indication
     Route: 048
     Dates: start: 20240604
  20. HEXAMEDINE [Concomitant]
     Indication: Product used for unknown indication
     Dosage: 0.12% 100ML, PRN, GARGLE;
     Dates: start: 20240604
  21. Trison KIT [Concomitant]
     Indication: Product used for unknown indication
     Route: 042
     Dates: start: 20240610
  22. METRONIDAZOLE [Concomitant]
     Active Substance: METRONIDAZOLE
     Indication: Product used for unknown indication
     Dosage: INJ. 100ML (BOTTLE); 10 ML (BOTTLE);
     Route: 042
     Dates: start: 20240610
  23. Samsung Amoburofen Premix Injection [Concomitant]
     Indication: Product used for unknown indication
     Dosage: ONCE;
     Route: 042
     Dates: start: 20240610
  24. HUMULIN R [Concomitant]
     Active Substance: INSULIN HUMAN
     Indication: Product used for unknown indication
     Dosage: 100 IU;
     Route: 058
     Dates: start: 20240611
  25. CALCIUM GLUCONATE [Concomitant]
     Active Substance: CALCIUM GLUCONATE
     Indication: Product used for unknown indication
     Dosage: INJECTION 20ML;
     Route: 042
     Dates: start: 20240611
  26. KASUWELL [Concomitant]
     Indication: Product used for unknown indication
     Route: 048
     Dates: start: 20240611
  27. CALCIUM POLYSTYRENE SULFONATE [Concomitant]
     Active Substance: CALCIUM POLYSTYRENE SULFONATE
     Indication: Product used for unknown indication
     Route: 048
     Dates: start: 20240611
  28. Dulackhan Easy [Concomitant]
     Indication: Product used for unknown indication
     Dosage: 15ML;
     Route: 048
     Dates: start: 20240617
  29. Encover (coffee flavor) [Concomitant]
     Indication: Product used for unknown indication
     Dosage: SOLN 200ML, PRN;
     Route: 048
     Dates: start: 20240616
  30. FLASINYL [Concomitant]
     Indication: Product used for unknown indication
     Route: 048
     Dates: start: 20240626
  31. LEVOFLOXACIN [Concomitant]
     Active Substance: LEVOFLOXACIN
     Indication: Product used for unknown indication
     Dosage: ONCE, 500MG/100ML (BAG);
     Route: 042
     Dates: start: 20240626
  32. Samsung Ibuprofen Pre-mix Injection [Concomitant]
     Indication: Product used for unknown indication
     Dosage: ONCE;
     Route: 042
     Dates: start: 20240626
  33. SMOFLIPID [Concomitant]
     Active Substance: FISH OIL\MEDIUM-CHAIN TRIGLYCERIDES\OLIVE OIL\SOYBEAN OIL
     Indication: Product used for unknown indication
     Dosage: 20% INJECTION 500ML, PRN;
     Route: 042
     Dates: start: 20240626
  34. Myungmoon Methocarbamol [Concomitant]
     Indication: Product used for unknown indication
     Dosage: 1G/10ML, PRN;
     Route: 042
     Dates: start: 20240708
  35. ACETPHEN PREMIX [Concomitant]
     Indication: Product used for unknown indication
     Dosage: INJ. 100ML;
     Route: 042
     Dates: start: 20240708
  36. TRAMADOL HYDROCHLORIDE [Concomitant]
     Active Substance: TRAMADOL HYDROCHLORIDE
     Indication: Product used for unknown indication
     Dosage: ONCE, 50MG/ML;
     Route: 042
     Dates: start: 20240708
  37. Dicamax 1000 [Concomitant]
     Indication: Product used for unknown indication
     Route: 048
     Dates: start: 20240718
  38. TRAZODONE HYDROCHLORIDE [Concomitant]
     Active Substance: TRAZODONE HYDROCHLORIDE
     Indication: Product used for unknown indication
     Route: 048
     Dates: start: 20240730
  39. NUCYNTA ER [Concomitant]
     Active Substance: TAPENTADOL HYDROCHLORIDE
     Indication: Product used for unknown indication
     Route: 048
     Dates: start: 20240325
  40. CHOLINE ALFOSCERATE [Concomitant]
     Active Substance: CHOLINE ALFOSCERATE
     Indication: Product used for unknown indication
     Route: 048
     Dates: start: 20240718
  41. Mytonin [Concomitant]
     Indication: Product used for unknown indication
     Route: 048
     Dates: start: 20240718
  42. ULTRACET [Concomitant]
     Active Substance: ACETAMINOPHEN\TRAMADOL HYDROCHLORIDE
     Indication: Product used for unknown indication
     Dosage: PRN;
     Route: 048
     Dates: start: 20240813
  43. TRAMADOL HYDROCHLORIDE [Concomitant]
     Active Substance: TRAMADOL HYDROCHLORIDE
     Indication: Product used for unknown indication
     Route: 048
     Dates: start: 20240912
  44. PROPACETAMOL HYDROCHLORIDE [Concomitant]
     Active Substance: PROPACETAMOL HYDROCHLORIDE
     Indication: Product used for unknown indication
     Route: 042
     Dates: start: 20240912

REACTIONS (6)
  - Abdominal pain [Recovered/Resolved]
  - Hyperbilirubinaemia [Unknown]
  - Blood alkaline phosphatase increased [Unknown]
  - Gamma-glutamyltransferase increased [Unknown]
  - C-reactive protein increased [Unknown]
  - Off label use [Unknown]

NARRATIVE: CASE EVENT DATE: 20240912
